FAERS Safety Report 8269155-5 (Version None)
Quarter: 2012Q2

REPORT INFORMATION
  Report Type: 
  Country: None (occurrence: None)
  Receive Date: 20120409
  Receipt Date: 20120327
  Transmission Date: 20120825
  Serious: No
  Sender: FDA-Public Use
  Company Number: US-B.I. PHARMACEUTICALS,INC./RIDGEFIELD-2012-BP-05772BP

PATIENT
  Age: 80 Year
  Sex: Male

DRUGS (8)
  1. AZILECT [Concomitant]
     Indication: PARKINSON'S DISEASE
     Route: 048
  2. LASIX [Concomitant]
     Indication: CARDIAC FAILURE CONGESTIVE
     Route: 048
  3. TIKOSYN [Concomitant]
     Indication: ATRIAL FIBRILLATION
     Route: 048
  4. SPIRONOLACTONE [Concomitant]
     Indication: CARDIAC FAILURE CONGESTIVE
     Route: 048
  5. PRADAXA [Suspect]
     Dosage: 150 MG
     Route: 048
     Dates: start: 20120313
  6. NITROGLYCERIN TABLETS [Concomitant]
     Indication: ANGINA PECTORIS
     Route: 060
  7. IMDUR [Concomitant]
     Indication: ANGINA PECTORIS
     Route: 048
  8. PRADAXA [Suspect]
     Indication: ATRIAL FIBRILLATION
     Dosage: 300 MG
     Route: 048
     Dates: start: 20120214, end: 20120312

REACTIONS (5)
  - INTERNATIONAL NORMALISED RATIO ABNORMAL [None]
  - PROTHROMBIN TIME ABNORMAL [None]
  - CONTUSION [None]
  - RASH [None]
  - THROMBIN TIME PROLONGED [None]
